FAERS Safety Report 16845350 (Version 1)
Quarter: 2019Q4

REPORT INFORMATION
  Report Type: Spontaneous
  Country: US (occurrence: US)
  Receive Date: 20190924
  Receipt Date: 20190924
  Transmission Date: 20200122
  Serious: No
  Sender: FDA-Public Use
  Company Number: None

PATIENT
  Age: 19 Year
  Sex: Male

DRUGS (2)
  1. ATENOLOL 50MG (GG 263 IMPRINT) [Suspect]
     Active Substance: ATENOLOL
     Indication: PALPITATIONS
  2. SYNTHROID [Concomitant]
     Active Substance: LEVOTHYROXINE SODIUM

REACTIONS (3)
  - Extrasystoles [None]
  - Dyspnoea [None]
  - Palpitations [None]
